FAERS Safety Report 9993736 (Version 2)
Quarter: 2014Q1

REPORT INFORMATION
  Report Type: Spontaneous
  Country: JP (occurrence: JP)
  Receive Date: 20140310
  Receipt Date: 20140318
  Transmission Date: 20141002
  Serious: Yes (Hospitalization)
  Sender: FDA-Public Use
  Company Number: JP-B.I. PHARMACEUTICALS,INC./RIDGEFIELD-2014-BI-10504GD

PATIENT
  Age: 85 Year
  Sex: Male

DRUGS (2)
  1. LINAGLIPTIN [Suspect]
     Indication: TYPE 2 DIABETES MELLITUS
     Route: 065
  2. VILDAGLIPTIN [Suspect]
     Indication: TYPE 2 DIABETES MELLITUS
     Route: 065
     Dates: start: 201303

REACTIONS (1)
  - Lung disorder [Not Recovered/Not Resolved]
